FAERS Safety Report 16062454 (Version 1)
Quarter: 2019Q1

REPORT INFORMATION
  Report Type: Spontaneous
  Country: FI (occurrence: FI)
  Receive Date: 20190312
  Receipt Date: 20190312
  Transmission Date: 20190418
  Serious: Yes (Hospitalization)
  Sender: FDA-Public Use
  Company Number: PHHY2019FI043481

PATIENT
  Age: 17 Year
  Sex: Male

DRUGS (24)
  1. QUETIAPINE. [Suspect]
     Active Substance: QUETIAPINE
     Indication: AUTISM SPECTRUM DISORDER
     Dosage: 200 MG, QD (1500-200)
     Route: 065
  2. VALPROATE SODIUM. [Suspect]
     Active Substance: VALPROATE SODIUM
     Indication: EPILEPSY
  3. HALOPERIDOL. [Suspect]
     Active Substance: HALOPERIDOL
     Indication: INTELLECTUAL DISABILITY
     Route: 065
  4. VALPROATE SODIUM. [Suspect]
     Active Substance: VALPROATE SODIUM
     Indication: AUTISM SPECTRUM DISORDER
  5. DIAZEPAM. [Suspect]
     Active Substance: DIAZEPAM
     Indication: MOVEMENT DISORDER
  6. QUETIAPINE. [Suspect]
     Active Substance: QUETIAPINE
     Indication: INTELLECTUAL DISABILITY
  7. DIAZEPAM. [Suspect]
     Active Substance: DIAZEPAM
     Indication: INTELLECTUAL DISABILITY
     Route: 065
  8. HALOPERIDOL. [Suspect]
     Active Substance: HALOPERIDOL
     Indication: AUTISM SPECTRUM DISORDER
  9. CHLORPROTHIXENE [Suspect]
     Active Substance: CHLORPROTHIXENE
     Indication: INTELLECTUAL DISABILITY
  10. CLONAZEPAM. [Suspect]
     Active Substance: CLONAZEPAM
     Indication: AUTISM SPECTRUM DISORDER
     Route: 065
  11. MELATONIN [Concomitant]
     Active Substance: MELATONIN
     Indication: SLEEP DISORDER
     Route: 065
  12. CHLORPROTHIXENE [Suspect]
     Active Substance: CHLORPROTHIXENE
     Indication: AUTISM SPECTRUM DISORDER
     Route: 065
  13. CLONAZEPAM. [Suspect]
     Active Substance: CLONAZEPAM
     Indication: INTELLECTUAL DISABILITY
  14. PIPERIDINE [Concomitant]
     Active Substance: PIPERIDINE
     Indication: PRODUCT USED FOR UNKNOWN INDICATION
     Route: 065
  15. QUETIAPINE. [Suspect]
     Active Substance: QUETIAPINE
     Indication: ABNORMAL BEHAVIOUR
  16. CLONAZEPAM. [Suspect]
     Active Substance: CLONAZEPAM
     Indication: MOVEMENT DISORDER
  17. PHENOTHIAZINE [Suspect]
     Active Substance: PHENOTHIAZINE
     Indication: AGGRESSION
     Route: 065
  18. RISPERIDONE. [Suspect]
     Active Substance: RISPERIDONE
     Indication: AGGRESSION
  19. RISPERIDONE. [Suspect]
     Active Substance: RISPERIDONE
     Indication: INTELLECTUAL DISABILITY
     Route: 065
  20. RISPERIDONE. [Suspect]
     Active Substance: RISPERIDONE
     Indication: AUTISM SPECTRUM DISORDER
  21. HALOPERIDOL. [Suspect]
     Active Substance: HALOPERIDOL
     Indication: MOVEMENT DISORDER
  22. CHLORPROTHIXENE [Suspect]
     Active Substance: CHLORPROTHIXENE
     Indication: SLEEP DISORDER
  23. VALPROATE SODIUM. [Suspect]
     Active Substance: VALPROATE SODIUM
     Indication: INTELLECTUAL DISABILITY
     Dosage: 1000 MG, QD (600-1000 MG DAILY)
     Route: 065
  24. DIAZEPAM. [Suspect]
     Active Substance: DIAZEPAM
     Indication: AUTISM SPECTRUM DISORDER

REACTIONS (1)
  - Tardive dyskinesia [Recovered/Resolved]
